FAERS Safety Report 20059069 (Version 2)
Quarter: 2021Q4

REPORT INFORMATION
  Report Type: Spontaneous
  Country: GB (occurrence: GB)
  Receive Date: 20211111
  Receipt Date: 20211122
  Transmission Date: 20220303
  Serious: Yes (Other)
  Sender: FDA-Public Use
  Company Number: GB-TEVA-2021-GB-1974886

PATIENT
  Age: 1 Year
  Sex: Female

DRUGS (7)
  1. PREDNISOLONE [Suspect]
     Active Substance: PREDNISOLONE
     Indication: Xanthogranuloma
     Route: 065
  2. PREDNISOLONE [Suspect]
     Active Substance: PREDNISOLONE
     Indication: Retinal disorder
  3. CLOFARABINE [Suspect]
     Active Substance: CLOFARABINE
     Indication: Xanthogranuloma
     Dosage: DOSAGE: 25 MG/M2 FOR FIVE CONSECUTIVE DAYS
     Route: 065
  4. CLOFARABINE [Suspect]
     Active Substance: CLOFARABINE
     Indication: Retinal disorder
  5. VINBLASTINE [Suspect]
     Active Substance: VINBLASTINE
     Indication: Xanthogranuloma
     Route: 065
  6. VINBLASTINE [Suspect]
     Active Substance: VINBLASTINE
     Indication: Retinal disorder
  7. DESMOPRESSIN [Concomitant]
     Active Substance: DESMOPRESSIN
     Indication: Diabetes insipidus
     Route: 065

REACTIONS (3)
  - Colitis [Unknown]
  - Mucosal inflammation [Unknown]
  - Drug ineffective [Unknown]
